FAERS Safety Report 8236337-8 (Version None)
Quarter: 2012Q1

REPORT INFORMATION
  Report Type: 
  Country: None (occurrence: None)
  Receive Date: 20120327
  Receipt Date: 20120319
  Transmission Date: 20120608
  Serious: Yes (Hospitalization)
  Sender: FDA-Public Use
  Company Number: CA-JNJFOC-20120310242

PATIENT
  Sex: Female
  Weight: 69 kg

DRUGS (5)
  1. METHOTREXATE [Concomitant]
     Dosage: 2X/SEM
  2. VITAMIN B-12 [Concomitant]
     Route: 030
  3. STELARA [Suspect]
     Indication: PSORIASIS
     Route: 058
     Dates: start: 20060101
  4. CLONAZEPAM [Concomitant]
  5. ZOLOFT [Concomitant]
     Route: 048

REACTIONS (1)
  - GASTROENTERITIS [None]
